FAERS Safety Report 21886108 (Version 1)
Quarter: 2023Q1

REPORT INFORMATION
  Report Type: Spontaneous
  Country: US (occurrence: None)
  Receive Date: 20230118
  Receipt Date: 20230118
  Transmission Date: 20230417
  Serious: Yes (Death)
  Sender: FDA-Public Use
  Company Number: None

PATIENT
  Age: 80 Year
  Sex: Male
  Weight: 86.1 kg

DRUGS (20)
  1. TECLISTAMAB-CQYV [Suspect]
     Active Substance: TECLISTAMAB-CQYV
     Indication: Plasma cell myeloma refractory
     Dosage: OTHER FREQUENCY : EVERY 72 HOURS;?
     Route: 058
     Dates: start: 20230104
  2. acetaminophen 650mg tablet [Concomitant]
     Dates: start: 20230103
  3. acyclovir 400mg capsule [Concomitant]
     Dates: start: 20230103
  4. benzonatate 100mg capsule [Concomitant]
     Dates: start: 20230104
  5. dexamethasone 16mg tablet [Concomitant]
     Dates: start: 20230104
  6. dexamethasone 8mg injection [Concomitant]
     Dates: start: 20230106
  7. diphenhydramine 50mg capsule [Concomitant]
     Dates: start: 20230104
  8. flecainide 100mg tablet [Concomitant]
     Dates: start: 20230103
  9. LEVETIRACETAM [Concomitant]
     Active Substance: LEVETIRACETAM
     Dates: start: 20230103
  10. metoprolol succinate 50mg tablet [Concomitant]
     Dates: start: 20230103
  11. ondansetron 8mg oral and IV formulation [Concomitant]
     Dates: start: 20230103
  12. pantoprazole DR 40mg tablet [Concomitant]
     Dates: start: 20230103
  13. sulfamethoxazole-trimethoprim 800/160 tablet [Concomitant]
     Dates: start: 20230103
  14. tamsulosin 0.4mg capsule [Concomitant]
     Dates: start: 20230103
  15. tocilizumab 600 mg intravenous infusion [Concomitant]
     Dates: start: 20230106
  16. valacyclovir 500mg tablet [Concomitant]
     Dates: start: 20230103
  17. epinephrine 1 mg/mL injection [Concomitant]
     Dates: start: 20230106
  18. methocarbamol 500mg tablet [Concomitant]
     Dates: start: 20230106
  19. midodrine 10mg tablet [Concomitant]
     Dates: start: 20230106
  20. Norepinephrine 16mg Infusion [Concomitant]
     Dates: start: 20230106

REACTIONS (7)
  - Confusional state [None]
  - Unresponsive to stimuli [None]
  - Asthenia [None]
  - Abdominal wall haematoma [None]
  - Shock haemorrhagic [None]
  - Cytokine release syndrome [None]
  - Bradycardia [None]

NARRATIVE: CASE EVENT DATE: 20230108
